FAERS Safety Report 13741578 (Version 1)
Quarter: 2017Q3

REPORT INFORMATION
  Report Type: Spontaneous
  Country: US (occurrence: US)
  Receive Date: 20170711
  Receipt Date: 20170711
  Transmission Date: 20171127
  Serious: No
  Sender: FDA-Public Use
  Company Number: US-PFIZER INC-2017296867

PATIENT
  Age: 74 Year
  Sex: Female
  Weight: 81.65 kg

DRUGS (5)
  1. RELPAX [Suspect]
     Active Substance: ELETRIPTAN HYDROBROMIDE
     Indication: MIGRAINE
     Dosage: 40MG TABLET BY MOUTH AS NEEDED IN 24 HOURS
     Route: 048
     Dates: start: 2017
  2. SERTRALINE [Concomitant]
     Active Substance: SERTRALINE HYDROCHLORIDE
     Indication: SLEEP DISORDER
  3. LAMICTAL [Concomitant]
     Active Substance: LAMOTRIGINE
     Indication: HEADACHE
     Dosage: 50 MG, 1X/DAY(50MG BY MOUTH ONCE A DAY AT NIGHT)
     Route: 048
  4. SERTRALINE [Concomitant]
     Active Substance: SERTRALINE HYDROCHLORIDE
     Indication: MIGRAINE
     Dosage: 25 MG, UNK
  5. SERTRALINE [Concomitant]
     Active Substance: SERTRALINE HYDROCHLORIDE
     Indication: HEADACHE
     Dosage: 50 MG, 1X/DAY(50MG BY MOUTH ONCE A DAY AT NIGHT)
     Route: 048

REACTIONS (3)
  - Cluster headache [Unknown]
  - Medication overuse headache [Unknown]
  - Drug effect incomplete [Unknown]

NARRATIVE: CASE EVENT DATE: 2017
